FAERS Safety Report 7809234-7 (Version None)
Quarter: 2011Q4

REPORT INFORMATION
  Report Type: 
  Country: None (occurrence: None)
  Receive Date: 20111012
  Receipt Date: 20111005
  Transmission Date: 20120403
  Serious: Yes (Other)
  Sender: FDA-Public Use
  Company Number: US-AMGEN-USASP2011051647

PATIENT
  Sex: Female

DRUGS (1)
  1. ENBREL [Suspect]
     Indication: RHEUMATOID ARTHRITIS
     Dosage: 50 MG, 2 TIMES/WK
     Dates: start: 20020201

REACTIONS (5)
  - RHEUMATOID ARTHRITIS [None]
  - LUNG DISORDER [None]
  - POSITRON EMISSION TOMOGRAM [None]
  - BIOPSY LUNG [None]
  - PYREXIA [None]
